FAERS Safety Report 7194258-6 (Version None)
Quarter: 2010Q4

REPORT INFORMATION
  Report Type: 
  Country: None (occurrence: None)
  Receive Date: 20101223
  Receipt Date: 20101215
  Transmission Date: 20110411
  Serious: Yes (Death, Hospitalization)
  Sender: FDA-Public Use
  Company Number: US-GILEAD-2010-0034229

PATIENT
  Sex: Female
  Weight: 118.04 kg

DRUGS (17)
  1. LETAIRIS [Suspect]
     Indication: PULMONARY ARTERIAL HYPERTENSION
     Route: 048
     Dates: start: 20101109
  2. CARDIZEM [Concomitant]
  3. LIDOCAINE NEBS [Concomitant]
  4. NURTONE [Concomitant]
  5. ACETYLCYSTEINE [Concomitant]
  6. METFORMIN [Concomitant]
  7. BYETTA [Concomitant]
  8. PRILOSEC [Concomitant]
  9. REGLAN [Concomitant]
  10. FLEXERIL [Concomitant]
  11. LIDOCAINE [Concomitant]
  12. NASONEX [Concomitant]
  13. MUCINEX [Concomitant]
  14. IMODIUM [Concomitant]
  15. FOLIC ACID [Concomitant]
  16. VITAMIN B COMPLEX [Concomitant]
  17. VITAMIN D [Concomitant]

REACTIONS (2)
  - CARDIAC ARREST [None]
  - HYPOXIC-ISCHAEMIC ENCEPHALOPATHY [None]
